FAERS Safety Report 6977717-8 (Version None)
Quarter: 2010Q3

REPORT INFORMATION
  Report Type: 
  Country: None (occurrence: None)
  Receive Date: 20100913
  Receipt Date: 20100902
  Transmission Date: 20110219
  Serious: No
  Sender: FDA-Public Use
  Company Number: US-BIOGENIDEC-2010BI030859

PATIENT
  Sex: Female

DRUGS (3)
  1. TYSABRI [Suspect]
     Indication: MULTIPLE SCLEROSIS
     Route: 042
     Dates: start: 20050125, end: 20050328
  2. TYSABRI [Suspect]
     Route: 042
     Dates: start: 20060914, end: 20091101
  3. TYSABRI [Suspect]
     Route: 042
     Dates: start: 20091101

REACTIONS (5)
  - FATIGUE [None]
  - MOBILITY DECREASED [None]
  - MULTIPLE SCLEROSIS RELAPSE [None]
  - NAUSEA [None]
  - VOMITING [None]
